FAERS Safety Report 15645551 (Version 1)
Quarter: 2018Q4

REPORT INFORMATION
  Report Type: Spontaneous
  Country: US (occurrence: US)
  Receive Date: 20181121
  Receipt Date: 20181121
  Transmission Date: 20190205
  Serious: Yes (Other)
  Sender: FDA-Public Use
  Company Number: None

PATIENT
  Age: 54 Year
  Sex: Male
  Weight: 90 kg

DRUGS (1)
  1. GENERICA VIAGRA - SILDENAFIL [Suspect]
     Active Substance: SILDENAFIL
     Indication: ERECTILE DYSFUNCTION
     Dosage: ?          QUANTITY:1 TABLET(S);?
     Route: 048
     Dates: start: 20181108, end: 20181108

REACTIONS (3)
  - Poor quality sleep [None]
  - Heart rate increased [None]
  - Drug ineffective [None]

NARRATIVE: CASE EVENT DATE: 20181120
